FAERS Safety Report 25412333 (Version 1)
Quarter: 2025Q2

REPORT INFORMATION
  Report Type: Report from Study
  Country: US (occurrence: US)
  Receive Date: 20250609
  Receipt Date: 20250609
  Transmission Date: 20250717
  Serious: No
  Sender: MALLINCKRODT
  Company Number: US-MALLINCKRODT-MNK202500301

PATIENT
  Age: 37 Year
  Sex: Female
  Weight: 119 kg

DRUGS (4)
  1. CORTICOTROPIN [Suspect]
     Active Substance: CORTICOTROPIN
     Indication: Chronic kidney disease
     Route: 058
     Dates: start: 20250108
  2. ONDANSETRON [Concomitant]
     Active Substance: ONDANSETRON
  3. JARDIANCE [Concomitant]
     Active Substance: EMPAGLIFLOZIN
  4. IMURAN [Concomitant]
     Active Substance: AZATHIOPRINE

REACTIONS (3)
  - Injection site irritation [Unknown]
  - Weight increased [Unknown]
  - Fluid retention [Unknown]

NARRATIVE: CASE EVENT DATE: 20250101
